FAERS Safety Report 5243747-X (Version None)
Quarter: 2007Q1

REPORT INFORMATION
  Report Type: 
  Country: None (occurrence: None)
  Receive Date: 20070222
  Receipt Date: 20070216
  Transmission Date: 20070707
  Serious: Yes (Other)
  Sender: FDA-Public Use
  Company Number: GBWYE425526NOV03

PATIENT
  Sex: Male
  Weight: 79.2 kg

DRUGS (8)
  1. RAPAMUNE [Suspect]
     Indication: IMMUNOSUPPRESSANT DRUG THERAPY
     Route: 048
     Dates: start: 20021107, end: 20031110
  2. MYCOPHENOLATE MOFETIL [Concomitant]
  3. NEORAL [Concomitant]
     Dosage: UNKNOWN
     Dates: start: 19960421, end: 20021106
  4. IRBESARTAN [Concomitant]
     Dosage: 75MG FREQUENCY UNSPECIFIED
  5. ATENOLOL [Concomitant]
  6. PREDNISOLONE [Concomitant]
     Route: 048
  7. TRIMETHOPRIM [Concomitant]
     Dosage: 100MG FREQUENCY UNSPECIFIED
  8. ATORVASTATIN [Concomitant]
     Dosage: 10MG FREQUENCY UNSPECIFIED

REACTIONS (1)
  - FOCAL GLOMERULOSCLEROSIS [None]
